FAERS Safety Report 6414349-4 (Version None)
Quarter: 2009Q4

REPORT INFORMATION
  Report Type: 
  Country: None (occurrence: None)
  Receive Date: 20091021
  Receipt Date: 20091006
  Transmission Date: 20100525
  Serious: Yes (Hospitalization)
  Sender: FDA-Public Use
  Company Number: 2009-003876

PATIENT
  Age: 75 Year
  Sex: Male

DRUGS (16)
  1. VELCADE [Suspect]
     Indication: DRUG USE FOR UNKNOWN INDICATION
     Dosage: 1.2 MG, INTRAVENOUS
     Route: 042
     Dates: start: 20090714, end: 20090904
  2. DEXAMETHASONE TAB [Suspect]
     Indication: DRUG USE FOR UNKNOWN INDICATION
     Dosage: 6 MG, ORAL
     Route: 048
     Dates: start: 20090714, end: 20090914
  3. ASPIRIN [Concomitant]
  4. BENDROFLUMETHIAZIDE (BENDROFLUMETHIAZIDE) [Concomitant]
  5. BISOPROLOL FUMARATE [Concomitant]
  6. CARBOCISTEINE (CARBOCISTEINE) [Concomitant]
  7. DIPROBASE CREAM (CETOSTEARYL ACLCOHOL, PARAFFIN, LIQUID, WHITE SOFT PA [Concomitant]
  8. DOXAZOSIN MESYLATE [Concomitant]
  9. FINASTERIDE [Concomitant]
  10. FUROSEMIDE [Concomitant]
  11. MOXONIDINE (MOXONIDINE) [Concomitant]
  12. TELMISARTAN [Concomitant]
  13. CODEINE PHOSPHATE AND ACETAMINOPHEN [Concomitant]
  14. CATARRH (DIPHENHYDRAMINE HYDROCHLORIDE, PSEUDOEPHEDRINE HYDROCHLORIDE) [Concomitant]
  15. DOMPERIDONE (DOMPERIDONE) [Concomitant]
  16. PRAMIPEXOLE DIHYDROCHLORIDE (PRAMIPEXOLE DIHYDROCHLORIDE) [Concomitant]

REACTIONS (2)
  - LOWER RESPIRATORY TRACT INFECTION [None]
  - PNEUMONIA [None]
